FAERS Safety Report 5070814-6 (Version None)
Quarter: 2006Q3

REPORT INFORMATION
  Report Type: 
  Country: None (occurrence: None)
  Receive Date: 20060804
  Receipt Date: 20060424
  Transmission Date: 20061208
  Serious: No
  Sender: FDA-Public Use
  Company Number: US-GLAXOSMITHKLINE-A0603194A

PATIENT
  Sex: Male

DRUGS (2)
  1. NICORETTE (MINT) [Suspect]
     Indication: DRUG USE FOR UNKNOWN INDICATION
  2. HYDROCHLOROTHIAZIDE [Concomitant]

REACTIONS (3)
  - INTENTIONAL DRUG MISUSE [None]
  - MOUTH INJURY [None]
  - TOOTH DISORDER [None]
